FAERS Safety Report 25419192 (Version 1)
Quarter: 2025Q2

REPORT INFORMATION
  Report Type: Spontaneous
  Country: ES (occurrence: ES)
  Receive Date: 20250610
  Receipt Date: 20250610
  Transmission Date: 20250717
  Serious: Yes (Death)
  Sender: BRISTOL-MYERS SQUIBB COMPANY
  Company Number: ES-PFIZER INC-PV202500066970

PATIENT
  Sex: Male

DRUGS (2)
  1. AZTREONAM [Suspect]
     Active Substance: AZTREONAM
     Indication: Product used for unknown indication
  2. AVIBACTAM SODIUM\CEFTAZIDIME [Suspect]
     Active Substance: AVIBACTAM SODIUM\CEFTAZIDIME
     Indication: Product used for unknown indication

REACTIONS (1)
  - Incorrect dosage administered [Fatal]
